FAERS Safety Report 13594778 (Version 3)
Quarter: 2017Q4

REPORT INFORMATION
  Report Type: Spontaneous
  Country: JP (occurrence: JP)
  Receive Date: 20170530
  Receipt Date: 20171030
  Transmission Date: 20180320
  Serious: Yes (Hospitalization, Disabling, Other)
  Sender: FDA-Public Use
  Company Number: JP-DSJP-DSJ-2017-116144

PATIENT
  Age: 75 Year
  Sex: Female
  Weight: 48 kg

DRUGS (9)
  1. CHOTOSAN [Concomitant]
     Active Substance: CALCIUM SULFATE\HERBALS
     Indication: HEADACHE
     Dosage: 2.5 G, TID
     Route: 048
     Dates: start: 20150219
  2. CALCIUM LACTATE [Concomitant]
     Active Substance: CALCIUM LACTATE
     Indication: OSTEOPOROSIS
     Dosage: 2 G, QD
     Route: 048
     Dates: start: 20090109
  3. CONSTAN                            /00595201/ [Concomitant]
     Active Substance: ALPRAZOLAM
     Indication: ANXIETY
     Dosage: 0.4 MG, TID
     Route: 048
     Dates: start: 20090109
  4. BONALON [Concomitant]
     Active Substance: ALENDRONATE SODIUM
     Indication: OSTEOPOROSIS
     Dosage: 35 MG, ONCE EVERY 1 WK
     Route: 048
     Dates: start: 20090109
  5. ROXATI [Concomitant]
     Indication: ANAESTHETIC PREMEDICATION
     Dosage: 75 MG, BID
     Route: 048
     Dates: start: 20170425, end: 20170426
  6. TIZANIDINE                         /00740702/ [Concomitant]
     Active Substance: TIZANIDINE HYDROCHLORIDE
     Indication: MUSCLE TIGHTNESS
     Dosage: 1 MG, TID
     Route: 048
     Dates: start: 20090109
  7. ALFACALCIDOL [Concomitant]
     Active Substance: ALFACALCIDOL
     Indication: OSTEOPOROSIS
     Dosage: 0.5 ?G, QD
     Route: 048
     Dates: start: 20090109
  8. MEVALOTIN [Concomitant]
     Active Substance: PRAVASTATIN SODIUM
     Indication: HYPERLIPIDAEMIA
     Dosage: 10 MG, QD
     Route: 048
     Dates: start: 20090109
  9. LIXIANA TABLETS 15MG [Suspect]
     Active Substance: EDOXABAN TOSYLATE
     Indication: DEEP VEIN THROMBOSIS
     Dosage: 15 MG, QD
     Route: 048
     Dates: start: 20170505, end: 20170506

REACTIONS (2)
  - Underdose [Unknown]
  - Spinal epidural haematoma [Recovered/Resolved with Sequelae]

NARRATIVE: CASE EVENT DATE: 20170506
